FAERS Safety Report 9988469 (Version 1)
Quarter: 2014Q1

REPORT INFORMATION
  Report Type: Spontaneous
  Country: US (occurrence: US)
  Receive Date: 20140310
  Receipt Date: 20140310
  Transmission Date: 20141002
  Serious: No
  Sender: FDA-Public Use
  Company Number: US-BIOGENIDEC-2014BI017324

PATIENT
  Age: 30 Year
  Sex: Female
  Weight: 65 kg

DRUGS (6)
  1. TECFIDERA [Suspect]
     Indication: PRODUCT USED FOR UNKNOWN INDICATION
     Dates: start: 201305
  2. TYSABRI [Concomitant]
     Indication: MULTIPLE SCLEROSIS
     Route: 042
  3. VITAMIN D 3 [Concomitant]
  4. FLONASE [Concomitant]
     Route: 045
  5. ALEVE [Concomitant]
  6. ESTRADIOL [Concomitant]

REACTIONS (4)
  - Central nervous system lesion [Unknown]
  - Hypoaesthesia [Unknown]
  - Hyperreflexia [Unknown]
  - Vitamin D deficiency [Unknown]
